FAERS Safety Report 12647154 (Version 1)
Quarter: 2016Q3

REPORT INFORMATION
  Report Type: Spontaneous
  Country: US (occurrence: US)
  Receive Date: 20160812
  Receipt Date: 20160812
  Transmission Date: 20161109
  Serious: No
  Sender: FDA-Public Use
  Company Number: US-BEH-2016072454

PATIENT
  Sex: Female
  Weight: 59.86 kg

DRUGS (30)
  1. TRAMADOL HCL [Concomitant]
     Active Substance: TRAMADOL HYDROCHLORIDE
  2. SINGULAIR [Concomitant]
     Active Substance: MONTELUKAST SODIUM
  3. AMLODIPINE BESYLATE. [Concomitant]
     Active Substance: AMLODIPINE BESYLATE
  4. FERROUS SULFATE EXSICCATED [Concomitant]
  5. SYMBICORT [Concomitant]
     Active Substance: BUDESONIDE\FORMOTEROL FUMARATE DIHYDRATE
  6. THEOPHYLLINE [Concomitant]
     Active Substance: THEOPHYLLINE ANHYDROUS
  7. CYANOCOBALAMIN. [Concomitant]
     Active Substance: CYANOCOBALAMIN
  8. ZEMAIRA [Suspect]
     Active Substance: .ALPHA.1-PROTEINASE INHIBITOR HUMAN
     Indication: ALPHA-1 ANTI-TRYPSIN DEFICIENCY
     Dosage: 60 MG/KG, QW
     Route: 065
     Dates: start: 20160130
  9. FOLIC ACID. [Concomitant]
     Active Substance: FOLIC ACID
  10. NITROGLYCERIN. [Concomitant]
     Active Substance: NITROGLYCERIN
  11. METFORMIN HCL [Concomitant]
     Active Substance: METFORMIN HYDROCHLORIDE
  12. ASPIRIN (E.C.) [Concomitant]
     Active Substance: ASPIRIN
  13. ALBUTEROL                          /00139501/ [Concomitant]
     Active Substance: ALBUTEROL
  14. ALEVE [Concomitant]
     Active Substance: NAPROXEN SODIUM
  15. OXYGEN. [Concomitant]
     Active Substance: OXYGEN
  16. DIPHENHYDRAMINE. [Concomitant]
     Active Substance: DIPHENHYDRAMINE
  17. LISINOPRIL AND HYDROCHLORTIAZIDE [Concomitant]
  18. METHOTREXATE. [Concomitant]
     Active Substance: METHOTREXATE
  19. MULTIVITAMINS [Concomitant]
     Active Substance: VITAMINS
  20. PROAIR HFA [Concomitant]
     Active Substance: ALBUTEROL SULFATE
  21. XALATAN [Concomitant]
     Active Substance: LATANOPROST
  22. EPINEPHRINE. [Concomitant]
     Active Substance: EPINEPHRINE
  23. HEPARIN [Concomitant]
     Active Substance: HEPARIN SODIUM
  24. SODIUM CHLORIDE. [Concomitant]
     Active Substance: SODIUM CHLORIDE
  25. VITAMIN B12 [Concomitant]
     Active Substance: CYANOCOBALAMIN
  26. SYNTHROID [Concomitant]
     Active Substance: LEVOTHYROXINE SODIUM
  27. GLIPIZIDE. [Concomitant]
     Active Substance: GLIPIZIDE
  28. LIDOCAINE/PRILOCAINE [Concomitant]
     Active Substance: LIDOCAINE\PRILOCAINE
  29. SPIRIVA [Concomitant]
     Active Substance: TIOTROPIUM BROMIDE MONOHYDRATE
  30. PREDNISONE. [Concomitant]
     Active Substance: PREDNISONE

REACTIONS (2)
  - Fatigue [Unknown]
  - Asthenia [Unknown]
